FAERS Safety Report 10594917 (Version 2)
Quarter: 2014Q4

REPORT INFORMATION
  Report Type: Report from Study
  Country: US (occurrence: US)
  Receive Date: 20141120
  Receipt Date: 20141120
  Transmission Date: 20150529
  Serious: Yes (Hospitalization)
  Sender: FDA-Public Use
  Company Number: US-BIOGENIDEC-2014BI068261

PATIENT
  Age: 33 Year
  Sex: Female

DRUGS (3)
  1. TRINESSA [Concomitant]
     Active Substance: ETHINYL ESTRADIOL\NORGESTIMATE
     Route: 048
  2. CYANOCOBALAMIN. [Concomitant]
     Active Substance: CYANOCOBALAMIN
     Dosage: DOSE UNIT:1000
     Route: 030
  3. TYSABRI [Suspect]
     Active Substance: NATALIZUMAB
     Indication: MULTIPLE SCLEROSIS
     Route: 042
     Dates: start: 20110422, end: 20140428

REACTIONS (3)
  - Iron deficiency anaemia [Unknown]
  - Prescribed underdose [Unknown]
  - Herpes simplex meningitis [Recovered/Resolved]

NARRATIVE: CASE EVENT DATE: 201405
